FAERS Safety Report 14160626 (Version 1)
Quarter: 2017Q4

REPORT INFORMATION
  Report Type: Spontaneous
  Country: IT (occurrence: IT)
  Receive Date: 20171103
  Receipt Date: 20171103
  Transmission Date: 20180321
  Serious: Yes (Other)
  Sender: FDA-Public Use
  Company Number: None

PATIENT
  Age: 28 Year
  Sex: Male
  Weight: 94 kg

DRUGS (2)
  1. PROPECIA [Suspect]
     Active Substance: FINASTERIDE
     Indication: ALOPECIA
     Dosage: ?          QUANTITY:1 TABLET(S);OTHER FREQUENCY:1 EVERY OTHER DAY;?
     Route: 048
     Dates: start: 20160410, end: 20170210
  2. VITAMINS FOR HAIR AND NAILS [Concomitant]

REACTIONS (4)
  - Gynaecomastia [None]
  - Alopecia [None]
  - Seborrhoeic dermatitis [None]
  - Hyperandrogenism [None]

NARRATIVE: CASE EVENT DATE: 20170914
